FAERS Safety Report 10421003 (Version 1)
Quarter: 2014Q3

REPORT INFORMATION
  Report Type: Spontaneous
  Country: FR (occurrence: None)
  Receive Date: 20140828
  Receipt Date: 20140828
  Transmission Date: 20150326
  Serious: Yes (Hospitalization)
  Sender: FDA-Public Use
  Company Number: MA-20140812

PATIENT
  Age: 41 Year
  Sex: Male
  Weight: 46 kg

DRUGS (14)
  1. ALINIA [Suspect]
     Active Substance: NITAZOXANIDE
     Indication: GASTROENTERITIS CRYPTOSPORIDIAL
     Route: 048
     Dates: start: 20140717, end: 20140721
  2. CREAM WITH LACTOSE [Concomitant]
  3. KIVEXA [Concomitant]
     Active Substance: ABACAVIR SULFATE\LAMIVUDINE
  4. AP TERNAIRE [Concomitant]
  5. PANTOPRAZOLE [Concomitant]
     Active Substance: PANTOPRAZOLE SODIUM
  6. COUMADIN [Concomitant]
     Active Substance: WARFARIN SODIUM
  7. GANCICLOVIR IV [Concomitant]
  8. METOCLOPRAMIDE. [Concomitant]
     Active Substance: METOCLOPRAMIDE
  9. AP BINAIRE [Concomitant]
  10. LEVENOX [Concomitant]
  11. FLUCONAZOLE. [Concomitant]
     Active Substance: FLUCONAZOLE
  12. PENTACARINAT AEROSOL [Concomitant]
  13. ISENTRESS [Concomitant]
     Active Substance: RALTEGRAVIR POTASSIUM
  14. LEDERFOLINE [Concomitant]
     Active Substance: LEUCOVORIN CALCIUM

REACTIONS (2)
  - Cholestasis [None]
  - Pancreatitis [None]

NARRATIVE: CASE EVENT DATE: 20140721
